FAERS Safety Report 7880562-2 (Version None)
Quarter: 2011Q4

REPORT INFORMATION
  Report Type: 
  Country: None (occurrence: None)
  Receive Date: 20111101
  Receipt Date: 20101004
  Transmission Date: 20120403
  Serious: No
  Sender: FDA-Public Use
  Company Number: US-BAYER-201036336NA

PATIENT
  Age: 31 Year
  Sex: Female
  Weight: 49.887 kg

DRUGS (4)
  1. NORVASC [Concomitant]
  2. ATENOLOL [Concomitant]
     Indication: ABDOMINAL PAIN
  3. ULTRAVIST 300 [Suspect]
  4. ATENOLOL [Concomitant]
     Indication: COMPUTERISED TOMOGRAM
     Dosage: 3.5ML /SEC
     Route: 042
     Dates: start: 20110410, end: 20110410

REACTIONS (1)
  - THROAT IRRITATION [None]
